FAERS Safety Report 5183065-1 (Version None)
Quarter: 2006Q4

REPORT INFORMATION
  Report Type: 
  Country: None (occurrence: None)
  Receive Date: 20061212
  Receipt Date: 20061129
  Transmission Date: 20070319
  Serious: Yes (Other)
  Sender: FDA-Public Use
  Company Number: US-2006-030420

PATIENT
  Age: 58 Year
  Sex: Female
  Weight: 54 kg

DRUGS (10)
  1. LEUKINE [Suspect]
     Indication: NEUTROPENIA
     Dosage: SEE IMAGE
     Dates: start: 20060808, end: 20060808
  2. LEUKINE [Suspect]
     Indication: NEUTROPENIA
     Dosage: SEE IMAGE
     Dates: start: 20060815, end: 20060815
  3. LEUKINE [Suspect]
     Indication: NEUTROPENIA
     Dosage: SEE IMAGE
     Dates: start: 20060822, end: 20060822
  4. LEUKINE [Suspect]
     Indication: NEUTROPENIA
     Dosage: SEE IMAGE
     Dates: start: 20060911, end: 20060911
  5. LEUKINE [Suspect]
     Indication: NEUTROPENIA
     Dosage: SEE IMAGE
     Dates: start: 20060918, end: 20060918
  6. LEUKINE [Suspect]
     Indication: NEUTROPENIA
     Dosage: SEE IMAGE
     Dates: start: 20060925, end: 20060925
  7. LEUKINE [Suspect]
     Indication: NEUTROPENIA
     Dosage: SEE IMAGE
     Dates: start: 20061002, end: 20061009
  8. HERCEPTIN [Concomitant]
  9. TAXOL [Concomitant]
  10. CARBOPLATIN [Concomitant]

REACTIONS (7)
  - ASTHENIA [None]
  - CONVULSION [None]
  - DIZZINESS [None]
  - FEELING HOT [None]
  - MYDRIASIS [None]
  - NAUSEA [None]
  - TREMOR [None]
